FAERS Safety Report 17351263 (Version 1)
Quarter: 2020Q1

REPORT INFORMATION
  Report Type: Spontaneous
  Country: US (occurrence: US)
  Receive Date: 20200130
  Receipt Date: 20200130
  Transmission Date: 20200409
  Serious: Yes (Hospitalization, Other)
  Sender: FDA-Public Use
  Company Number: US-ROCHE-2533120

PATIENT
  Age: 54 Year
  Sex: Female
  Weight: 79.45 kg

DRUGS (3)
  1. METFORMIN [Concomitant]
     Active Substance: METFORMIN HYDROCHLORIDE
     Indication: INSULIN RESISTANCE
     Route: 048
  2. METFORMIN [Concomitant]
     Active Substance: METFORMIN HYDROCHLORIDE
     Route: 048
     Dates: start: 201912, end: 20200119
  3. TAMIFLU [Suspect]
     Active Substance: OSELTAMIVIR PHOSPHATE
     Indication: INFLUENZA
     Dosage: STANDARD DOSE
     Route: 048
     Dates: start: 20200112, end: 202001

REACTIONS (8)
  - Skin laceration [Recovering/Resolving]
  - Paranoia [Not Recovered/Not Resolved]
  - Delusion [Not Recovered/Not Resolved]
  - Posterior reversible encephalopathy syndrome [Not Recovered/Not Resolved]
  - Seizure [Recovered/Resolved]
  - Loss of consciousness [Recovered/Resolved]
  - Joint dislocation [Not Recovered/Not Resolved]
  - Tongue injury [Unknown]

NARRATIVE: CASE EVENT DATE: 20200118
